FAERS Safety Report 15583249 (Version 1)
Quarter: 2018Q4

REPORT INFORMATION
  Report Type: Spontaneous
  Country: US (occurrence: US)
  Receive Date: 20181103
  Receipt Date: 20181103
  Transmission Date: 20190205
  Serious: Yes (Other)
  Sender: FDA-Public Use
  Company Number: US-TEVA-2018-US-969839

PATIENT
  Age: 69 Year
  Sex: Male

DRUGS (3)
  1. QVAR REDIHALER [Suspect]
     Active Substance: BECLOMETHASONE DIPROPIONATE
     Indication: MULTIPLE CHEMICAL SENSITIVITY
     Dates: start: 201810
  2. THEOPHYLLINE [Concomitant]
     Active Substance: THEOPHYLLINE ANHYDROUS
     Dosage: 2 DOSAGE FORMS DAILY; 1 DF= 1 TABLET
  3. EPIPEN [Concomitant]
     Active Substance: EPINEPHRINE

REACTIONS (5)
  - Product substitution issue [Unknown]
  - Productive cough [Unknown]
  - Cough [Unknown]
  - Product use in unapproved indication [Unknown]
  - Dyspnoea [Unknown]

NARRATIVE: CASE EVENT DATE: 201810
